FAERS Safety Report 5874446-9 (Version None)
Quarter: 2008Q3

REPORT INFORMATION
  Report Type: 
  Country: None (occurrence: None)
  Receive Date: 20080908
  Receipt Date: 20080827
  Transmission Date: 20090109
  Serious: Yes (Other)
  Sender: FDA-Public Use
  Company Number: LT-PFIZER INC-2008072124

PATIENT
  Age: 39 Year
  Sex: Female

DRUGS (4)
  1. ZELDOX (CAPSULES) [Suspect]
     Indication: SCHIZOAFFECTIVE DISORDER
     Dosage: DAILY DOSE:140MG-TEXT:60 MG + 80 MG
     Route: 048
     Dates: start: 20060101
  2. CIPRALEX [Concomitant]
     Route: 048
  3. TIAPRIDAL [Concomitant]
  4. BENZODIAZEPINE DERIVATIVES [Concomitant]

REACTIONS (3)
  - BLEPHAROSPASM [None]
  - DYSKINESIA [None]
  - EXTRAPYRAMIDAL DISORDER [None]
